FAERS Safety Report 20650132 (Version 2)
Quarter: 2022Q3

REPORT INFORMATION
  Report Type: Spontaneous
  Country: US (occurrence: US)
  Receive Date: 20220329
  Receipt Date: 20220706
  Transmission Date: 20221026
  Serious: No
  Sender: FDA-Public Use
  Company Number: US-AVEO ONCOLOGY-2022-AVEO-US000058

PATIENT

DRUGS (3)
  1. FOTIVDA [Suspect]
     Active Substance: TIVOZANIB HYDROCHLORIDE
     Indication: Renal cell carcinoma
     Dosage: 1.34 MG, DAILY FOR 21 DAYS THEN 7 DAYS OFF
     Route: 048
     Dates: start: 20220211
  2. DEXAMETHASONE [Concomitant]
     Active Substance: DEXAMETHASONE
  3. CABOMETYX [Concomitant]
     Active Substance: CABOZANTINIB S-MALATE

REACTIONS (6)
  - Stomatitis [Recovering/Resolving]
  - Rash [Unknown]
  - Night sweats [Recovering/Resolving]
  - Oral herpes [Recovering/Resolving]
  - Dysgeusia [Unknown]
  - Skin irritation [Unknown]
